FAERS Safety Report 7396819-8 (Version None)
Quarter: 2011Q2

REPORT INFORMATION
  Report Type: 
  Country: None (occurrence: None)
  Receive Date: 20110406
  Receipt Date: 20110328
  Transmission Date: 20111010
  Serious: Yes (Hospitalization)
  Sender: FDA-Public Use
  Company Number: US-ASTRAZENECA-2011SE17951

PATIENT
  Age: 47 Year
  Sex: Female

DRUGS (3)
  1. NEXIUM [Suspect]
     Route: 048
  2. GEMFIBROZIL [Concomitant]
  3. DEXILANT [Concomitant]

REACTIONS (2)
  - RENAL TRANSPLANT [None]
  - GASTROOESOPHAGEAL REFLUX DISEASE [None]
